FAERS Safety Report 5386074-2 (Version None)
Quarter: 2007Q3

REPORT INFORMATION
  Report Type: 
  Country: None (occurrence: None)
  Receive Date: 20070710
  Receipt Date: 20070629
  Transmission Date: 20080115
  Serious: Yes (Hospitalization)
  Sender: FDA-Public Use
  Company Number: 235332K07USA

PATIENT
  Age: 39 Year
  Sex: Female
  Weight: 40.8237 kg

DRUGS (11)
  1. REBIF [Suspect]
     Indication: MULTIPLE SCLEROSIS
     Dosage: SEE IMAGE
     Route: 058
     Dates: start: 20031110, end: 20070401
  2. REBIF [Suspect]
     Indication: MULTIPLE SCLEROSIS
     Dosage: SEE IMAGE
     Route: 058
     Dates: start: 20070501
  3. HYDROCODONE (HYDROCODONE) [Concomitant]
  4. SOMA [Concomitant]
  5. ZANAFLEX [Concomitant]
  6. VALIUM [Concomitant]
  7. REGLAN [Concomitant]
  8. ZELNORM [Concomitant]
  9. DILANTIN [Concomitant]
  10. AMBIEN [Concomitant]
  11. JDUR (POTASSIUM CHLORIDE) [Concomitant]

REACTIONS (4)
  - DEHYDRATION [None]
  - PANCREATIC ABSCESS [None]
  - PULMONARY OEDEMA [None]
  - VOMITING [None]
